FAERS Safety Report 10182006 (Version 2)
Quarter: 2014Q2

REPORT INFORMATION
  Report Type: Report from Study
  Country: US (occurrence: US)
  Receive Date: 20140519
  Receipt Date: 20140602
  Transmission Date: 20141212
  Serious: Yes (Hospitalization, Other)
  Sender: FDA-Public Use
  Company Number: US-ABBVIE-14P-163-1236273-00

PATIENT
  Sex: Female
  Weight: 54.48 kg

DRUGS (2)
  1. HUMIRA [Suspect]
     Indication: RHEUMATOID ARTHRITIS
     Route: 058
  2. DIOVAN [Concomitant]
     Indication: BLOOD PRESSURE

REACTIONS (10)
  - Concussion [Recovered/Resolved]
  - Laceration [Recovered/Resolved]
  - Fall [Recovered/Resolved]
  - Dehydration [Recovered/Resolved]
  - Dizziness [Not Recovered/Not Resolved]
  - Vision blurred [Not Recovered/Not Resolved]
  - Seasonal allergy [Not Recovered/Not Resolved]
  - Hypothyroidism [Not Recovered/Not Resolved]
  - Neck pain [Not Recovered/Not Resolved]
  - Memory impairment [Not Recovered/Not Resolved]
